FAERS Safety Report 21480457 (Version 1)
Quarter: 2022Q4

REPORT INFORMATION
  Report Type: Spontaneous
  Country: PT (occurrence: PT)
  Receive Date: 20221019
  Receipt Date: 20221019
  Transmission Date: 20230112
  Serious: Yes (Hospitalization)
  Sender: FDA-Public Use
  Company Number: None

PATIENT
  Age: 11 Year
  Sex: Male

DRUGS (1)
  1. ONDANSETRON [Suspect]
     Active Substance: ONDANSETRON
     Indication: Nausea
     Dosage: SOS
     Route: 042

REACTIONS (4)
  - Rash maculo-papular [Recovered/Resolved]
  - Lip oedema [Recovered/Resolved]
  - Bronchospasm [Recovered/Resolved]
  - Urticaria [Recovered/Resolved]
